FAERS Safety Report 21008421 (Version 1)
Quarter: 2022Q2

REPORT INFORMATION
  Report Type: Spontaneous
  Country: NL (occurrence: NL)
  Receive Date: 20220627
  Receipt Date: 20220627
  Transmission Date: 20220720
  Serious: Yes (Life-Threatening, Other)
  Sender: FDA-Public Use
  Company Number: NL-CELLTRION INC.-2022NL009864

PATIENT

DRUGS (4)
  1. TRASTUZUMAB [Suspect]
     Active Substance: TRASTUZUMAB
     Indication: Non-small cell lung cancer metastatic
     Dosage: INITIAL LOADING DOSE OF 8 MG/KG BODY WEIGHT IN 21-DAY CYCLES
     Route: 042
  2. TRASTUZUMAB [Suspect]
     Active Substance: TRASTUZUMAB
     Dosage: MAINTENANCE DOSE OF 6 MG/KG BODY WEIGHT IN 21-DAY CYCLES
     Route: 042
  3. PERTUZUMAB [Suspect]
     Active Substance: PERTUZUMAB
     Indication: Non-small cell lung cancer metastatic
     Dosage: INITIAL LOADING DOSE OF 840 MG IN 21-DAY CYCLES
     Route: 042
  4. PERTUZUMAB [Suspect]
     Active Substance: PERTUZUMAB
     Dosage: MAINTENANCE DOSE OF 420 MG IN 21-DAY CYCLES
     Route: 042

REACTIONS (20)
  - Dyspnoea [Unknown]
  - Pneumonitis [Unknown]
  - Pneumococcal sepsis [Unknown]
  - Pneumothorax [Unknown]
  - Non-small cell lung cancer metastatic [Unknown]
  - Embolism [Unknown]
  - Back pain [Unknown]
  - Diarrhoea [Unknown]
  - Fatigue [Unknown]
  - Pain [Unknown]
  - Pleural effusion [Unknown]
  - Pneumonia [Unknown]
  - Hypercalcaemia [Unknown]
  - Malaise [Unknown]
  - Pyrexia [Unknown]
  - Disease progression [Unknown]
  - General physical health deterioration [Unknown]
  - Off label use [Unknown]
  - Drug effective for unapproved indication [Unknown]
  - Therapy partial responder [Unknown]
